FAERS Safety Report 9801897 (Version 2)
Quarter: 2014Q1

REPORT INFORMATION
  Report Type: Spontaneous
  Country: US (occurrence: US)
  Receive Date: 20140107
  Receipt Date: 20140107
  Transmission Date: 20141002
  Serious: No
  Sender: FDA-Public Use
  Company Number: US-ALLERGAN-1306882US

PATIENT
  Age: 47 Year
  Sex: Female

DRUGS (3)
  1. ACZONE [Suspect]
     Indication: ACNE
     Dosage: UNK UNK, BID
     Dates: end: 201305
  2. ACZONE [Suspect]
     Dosage: UNK
     Dates: start: 201208
  3. VIANA [Concomitant]
     Indication: PRODUCT USED FOR UNKNOWN INDICATION

REACTIONS (3)
  - Scratch [Recovering/Resolving]
  - Application site irritation [Recovering/Resolving]
  - Application site dryness [Recovered/Resolved]
